FAERS Safety Report 4267235-2 (Version None)
Quarter: 2004Q1

REPORT INFORMATION
  Report Type: 
  Country: None (occurrence: None)
  Receive Date: 20040107
  Receipt Date: 20031229
  Transmission Date: 20041129
  Serious: Yes (Other)
  Sender: FDA-Public Use
  Company Number: THQ2003A01470

PATIENT
  Sex: Male

DRUGS (5)
  1. LANSOPRAZOLE [Suspect]
     Dosage: (WHEN REQUIRED)
     Dates: start: 20010101
  2. CODEINE (CODEINE) [Concomitant]
  3. PARACETAMOL (PARACETAMOL) [Concomitant]
  4. TEMAZEPAM [Concomitant]
  5. DICLOFENAC SODIUM [Concomitant]

REACTIONS (1)
  - VASCULITIS [None]
